FAERS Safety Report 13998968 (Version 1)
Quarter: 2017Q3

REPORT INFORMATION
  Report Type: Spontaneous
  Country: DK (occurrence: DK)
  Receive Date: 20170922
  Receipt Date: 20170922
  Transmission Date: 20171128
  Serious: Yes (Hospitalization, Disabling)
  Sender: FDA-Public Use
  Company Number: DK-TEVA-807507ACC

PATIENT
  Age: 15 Year
  Sex: Male

DRUGS (1)
  1. PREDNISOLONE. [Suspect]
     Active Substance: PREDNISOLONE
     Indication: HENOCH-SCHONLEIN PURPURA
     Route: 048
     Dates: start: 20150516, end: 20150527

REACTIONS (6)
  - Arthralgia [Unknown]
  - Gait disturbance [Unknown]
  - Hip arthroplasty [Unknown]
  - Arthritis [Unknown]
  - Osteonecrosis [Unknown]
  - Oedema [Unknown]

NARRATIVE: CASE EVENT DATE: 2016
